FAERS Safety Report 21899772 (Version 1)
Quarter: 2023Q1

REPORT INFORMATION
  Report Type: Report from Study
  Country: US (occurrence: US)
  Receive Date: 20230123
  Receipt Date: 20230123
  Transmission Date: 20230418
  Serious: Yes (Other)
  Sender: FDA-Public Use
  Company Number: US-GILEAD-2023-0613627

PATIENT
  Sex: Female

DRUGS (1)
  1. AZTREONAM LYSINE [Suspect]
     Active Substance: AZTREONAM LYSINE
     Indication: Pseudomonas bronchitis
     Dosage: 75 ML, TID (28 DAYS ON, 28 DA)
     Route: 055
     Dates: start: 20171001

REACTIONS (1)
  - Pneumonia bacterial [Unknown]
